FAERS Safety Report 5425553-6 (Version None)
Quarter: 2007Q3

REPORT INFORMATION
  Report Type: 
  Country: None (occurrence: None)
  Receive Date: 20070824
  Receipt Date: 20070813
  Transmission Date: 20080115
  Serious: Yes (Other)
  Sender: FDA-Public Use
  Company Number: US-PFIZER INC-2007060952

PATIENT
  Sex: Female

DRUGS (1)
  1. CHANTIX [Suspect]
     Indication: SMOKING CESSATION THERAPY
     Dates: start: 20070614, end: 20070624

REACTIONS (4)
  - DYSPNOEA [None]
  - RASH [None]
  - SKIN EXFOLIATION [None]
  - SWOLLEN TONGUE [None]
